FAERS Safety Report 9122391 (Version 2)
Quarter: 2013Q2

REPORT INFORMATION
  Report Type: Spontaneous
  Country: BR (occurrence: BR)
  Receive Date: 20130227
  Receipt Date: 20130404
  Transmission Date: 20140414
  Serious: Yes (Life-Threatening, Hospitalization, Other)
  Sender: FDA-Public Use
  Company Number: PHHY2013BR018440

PATIENT
  Age: 54 Year
  Sex: Female
  Weight: 62 kg

DRUGS (3)
  1. GILENYA [Suspect]
     Indication: MULTIPLE SCLEROSIS
     Dosage: 0.5 MG, QD
     Route: 048
     Dates: start: 201301
  2. SYNTHROID [Concomitant]
     Indication: THYROID HORMONE REPLACEMENT THERAPY
     Dosage: 1 DF, QD
     Route: 048
  3. CRESTOR [Concomitant]
     Indication: BLOOD CHOLESTEROL INCREASED
     Dosage: 5 MG, THREE TIMES A WEEK
     Route: 048

REACTIONS (14)
  - Apparent death [Recovering/Resolving]
  - Atrioventricular block second degree [Recovering/Resolving]
  - Atrioventricular block first degree [Recovering/Resolving]
  - Heart rate decreased [Recovering/Resolving]
  - Intraocular pressure increased [Not Recovered/Not Resolved]
  - Heart rate increased [Recovered/Resolved]
  - Dizziness [Recovering/Resolving]
  - Palpitations [Recovering/Resolving]
  - Tunnel vision [Not Recovered/Not Resolved]
  - Dyspnoea [Recovered/Resolved]
  - Arrhythmia [Recovering/Resolving]
  - Chest discomfort [Recovered/Resolved]
  - Pulse abnormal [Recovered/Resolved]
  - Malaise [Unknown]
